FAERS Safety Report 12530780 (Version 1)
Quarter: 2016Q3

REPORT INFORMATION
  Report Type: Spontaneous
  Country: US (occurrence: US)
  Receive Date: 20160706
  Receipt Date: 20160706
  Transmission Date: 20161109
  Serious: No
  Sender: FDA-Public Use
  Company Number: US-BAYER-2016-127223

PATIENT
  Age: 54 Year
  Sex: Male
  Weight: 81.63 kg

DRUGS (4)
  1. MIRALAX [Suspect]
     Active Substance: POLYETHYLENE GLYCOL 3350
     Indication: CONSTIPATION
     Dosage: 1 DF, QD
     Dates: start: 2005, end: 200611
  2. GABAPENTIN. [Concomitant]
     Active Substance: GABAPENTIN
  3. MIRALAX [Suspect]
     Active Substance: POLYETHYLENE GLYCOL 3350
     Indication: CONSTIPATION
     Dosage: 2 DF, QD
     Dates: start: 200611
  4. KONSYL [Concomitant]
     Active Substance: PSYLLIUM HUSK

REACTIONS (5)
  - Product use issue [None]
  - Product use issue [None]
  - Product use issue [None]
  - Flatulence [Recovered/Resolved]
  - Abdominal distension [Unknown]

NARRATIVE: CASE EVENT DATE: 2005
